FAERS Safety Report 14955480 (Version 1)
Quarter: 2018Q2

REPORT INFORMATION
  Report Type: Report from Study
  Country: DE (occurrence: DE)
  Receive Date: 20180531
  Receipt Date: 20180531
  Transmission Date: 20180711
  Serious: Yes (Other)
  Sender: FDA-Public Use
  Company Number: DE-CONCORDIA PHARMACEUTICALS INC.-E2B_00011996

PATIENT
  Age: 6 Year
  Sex: Male

DRUGS (6)
  1. PACLITAXEL. [Suspect]
     Active Substance: PACLITAXEL
  2. TRETINOIN. [Suspect]
     Active Substance: TRETINOIN
  3. SORAFENIB [Suspect]
     Active Substance: SORAFENIB
     Indication: EWING^S SARCOMA
     Dosage: 400 MG DAILY
  4. IDARUBICIN [Suspect]
     Active Substance: IDARUBICIN
  5. VORINOSTAT [Suspect]
     Active Substance: VORINOSTAT
  6. TRIAMTERENE. [Suspect]
     Active Substance: TRIAMTERENE

REACTIONS (5)
  - Off label use [Unknown]
  - Neutropenia [Unknown]
  - Product use in unapproved indication [Unknown]
  - Product use issue [Unknown]
  - Lymphopenia [Unknown]
